FAERS Safety Report 7946792-6 (Version None)
Quarter: 2011Q4

REPORT INFORMATION
  Report Type: 
  Country: None (occurrence: None)
  Receive Date: 20111129
  Receipt Date: 20111122
  Transmission Date: 20120403
  Serious: Yes (Death, Hospitalization)
  Sender: FDA-Public Use
  Company Number: JP-B.I. PHARMACEUTICALS,INC./RIDGEFIELD-2011-EU-00486GD

PATIENT
  Age: 65 Year
  Sex: Female

DRUGS (2)
  1. WARFARIN SODIUM [Suspect]
     Indication: MALIGNANT ATROPHIC PAPULOSIS
     Route: 048
  2. DIPYRIDAMOLE [Suspect]
     Indication: MALIGNANT ATROPHIC PAPULOSIS
     Route: 048

REACTIONS (4)
  - INFECTIOUS PERITONITIS [None]
  - PLEURAL EFFUSION [None]
  - GENERAL PHYSICAL HEALTH DETERIORATION [None]
  - MALIGNANT ATROPHIC PAPULOSIS [None]
